FAERS Safety Report 17623728 (Version 5)
Quarter: 2020Q3

REPORT INFORMATION
  Report Type: Report from Study
  Country: US (occurrence: US)
  Receive Date: 20200403
  Receipt Date: 20200821
  Transmission Date: 20201102
  Serious: Yes (Hospitalization, Other)
  Sender: FDA-Public Use
  Company Number: US-ACTELION-A-US2019-199747

PATIENT
  Sex: Female
  Weight: 55.33 kg

DRUGS (4)
  1. UPTRAVI [Suspect]
     Active Substance: SELEXIPAG
     Indication: PULMONARY ARTERIAL HYPERTENSION
     Dosage: 600 MCG, BID
     Route: 048
  2. UPTRAVI [Suspect]
     Active Substance: SELEXIPAG
     Dosage: 400 MCG, BID
     Route: 048
  3. UPTRAVI [Suspect]
     Active Substance: SELEXIPAG
     Dosage: 800 MCG, BID
     Route: 048
  4. AMLODIPINE [Concomitant]
     Active Substance: AMLODIPINE BESYLATE

REACTIONS (20)
  - Pain [Unknown]
  - Dyspnoea [Unknown]
  - Headache [Not Recovered/Not Resolved]
  - Viral infection [Unknown]
  - Pain in extremity [Unknown]
  - Vasodilatation [Unknown]
  - Multiple allergies [Unknown]
  - Migraine [Unknown]
  - Cough [Unknown]
  - Sinus disorder [Unknown]
  - Upper-airway cough syndrome [Unknown]
  - Joint swelling [Unknown]
  - Lung neoplasm malignant [Not Recovered/Not Resolved]
  - Biopsy lung [Unknown]
  - Pneumonia [Unknown]
  - Red blood cell count decreased [Unknown]
  - Peripheral swelling [Unknown]
  - Procedural complication [Unknown]
  - Nasopharyngitis [Unknown]
  - White blood cell count decreased [Unknown]
